FAERS Safety Report 6701984-9 (Version None)
Quarter: 2010Q2

REPORT INFORMATION
  Report Type: 
  Country: None (occurrence: None)
  Receive Date: 20100429
  Receipt Date: 20100423
  Transmission Date: 20101027
  Serious: Yes (Hospitalization)
  Sender: FDA-Public Use
  Company Number: PT-ROCHE-699324

PATIENT
  Sex: Male

DRUGS (4)
  1. ROVALCYTE [Suspect]
     Dosage: START DATE REPORTED AS 2010, FREQUENCY: PER DAY, DRUG: ROVALCYTE FILM COATED TABLET 450 MG
     Route: 048
  2. SULFAMETHOXAZOLE [Concomitant]
     Indication: PNEUMOCYSTIS JIROVECI INFECTION
     Dosage: FREQUENCY: PER DAY
     Route: 048
  3. TRIMETHOPRIM [Concomitant]
     Indication: PNEUMOCYSTIS JIROVECI INFECTION
     Dosage: FREQUENCY: PER DAY
     Route: 048
  4. FLUCONAZOLE [Concomitant]
     Dosage: FREQUENCY: PER DAY
     Route: 048

REACTIONS (9)
  - ANAEMIA [None]
  - HYPONATRAEMIA [None]
  - LEUKOPENIA [None]
  - NEUTROPENIA [None]
  - RASH [None]
  - RASH ERYTHEMATOUS [None]
  - RASH GENERALISED [None]
  - RASH PAPULAR [None]
  - TRANSAMINASES INCREASED [None]
